FAERS Safety Report 21516685 (Version 1)
Quarter: 2022Q4

REPORT INFORMATION
  Report Type: Spontaneous
  Country: US (occurrence: None)
  Receive Date: 20221027
  Receipt Date: 20221027
  Transmission Date: 20230112
  Serious: No
  Sender: FDA-Public Use
  Company Number: None

PATIENT
  Age: 52 Year
  Sex: Female

DRUGS (1)
  1. KESIMPTA [Suspect]
     Active Substance: OFATUMUMAB
     Dosage: OTHER FREQUENCY : OTHER;?
     Route: 058

REACTIONS (6)
  - Chills [None]
  - Hypoaesthesia [None]
  - Movement disorder [None]
  - Dysstasia [None]
  - Fall [None]
  - Contusion [None]

NARRATIVE: CASE EVENT DATE: 20221014
